FAERS Safety Report 10575514 (Version 3)
Quarter: 2015Q4

REPORT INFORMATION
  Report Type: Report from Study
  Country: US (occurrence: US)
  Receive Date: 20141111
  Receipt Date: 20151210
  Transmission Date: 20160304
  Serious: Yes (Other)
  Sender: FDA-Public Use
  Company Number: US-ROCHE-1487221

PATIENT

DRUGS (7)
  1. OMBITASVIR [Interacting]
     Active Substance: OMBITASVIR
     Indication: HEPATITIS C
     Route: 048
  2. RITONAVIR. [Interacting]
     Active Substance: RITONAVIR
     Indication: HEPATITIS C
     Route: 048
  3. DASABUVIR [Interacting]
     Active Substance: DASABUVIR
     Indication: HEPATITIS C
     Route: 048
  4. TACROLIMUS. [Interacting]
     Active Substance: TACROLIMUS
     Indication: PROPHYLAXIS AGAINST TRANSPLANT REJECTION
     Dosage: DOSE ADJUSTMENT: 0.5 MG ONCE WEEKLY OR 0.2 MG EVERY 3 DAYS
     Route: 065
  5. CYCLOSPORINE. [Interacting]
     Active Substance: CYCLOSPORINE
     Indication: PROPHYLAXIS AGAINST TRANSPLANT REJECTION
     Dosage: DOSE ADJUSTMENT: 1/5 THE DAILY PRE STUDY DOSE ONCE DAILY
     Route: 065
  6. ABT-450 [Interacting]
     Active Substance: PARITAPREVIR
     Indication: HEPATITIS C
     Route: 048
  7. RIBAVIRIN. [Suspect]
     Active Substance: RIBAVIRIN
     Indication: HEPATITIS C
     Route: 048

REACTIONS (6)
  - Blood bilirubin increased [Unknown]
  - Lymphocyte count decreased [Unknown]
  - Blood glucose increased [Unknown]
  - Blood triglycerides increased [Unknown]
  - Drug interaction [Unknown]
  - Blood potassium increased [Unknown]
